FAERS Safety Report 11111943 (Version 1)
Quarter: 2015Q2

REPORT INFORMATION
  Report Type: Spontaneous
  Country: None (occurrence: None)
  Receive Date: 20150513
  Receipt Date: 20150513
  Transmission Date: 20150821
  Serious: Yes (Other)
  Sender: FDA-Public Use
  Company Number: None

PATIENT
  Age: 41 Year
  Sex: Female

DRUGS (1)
  1. LEVOTHYROXINE 25 MCG MYLAN [Suspect]
     Active Substance: LEVOTHYROXINE
     Indication: HYPOTHYROIDISM
     Dates: start: 20150312, end: 20150331

REACTIONS (3)
  - Headache [None]
  - Somnolence [None]
  - Nausea [None]

NARRATIVE: CASE EVENT DATE: 201203
